FAERS Safety Report 7134322-0 (Version None)
Quarter: 2010Q4

REPORT INFORMATION
  Report Type: 
  Country: None (occurrence: None)
  Receive Date: 20101203
  Receipt Date: 20081212
  Transmission Date: 20110411
  Serious: Yes (Other)
  Sender: FDA-Public Use
  Company Number: FR-CELGENEUS-056-21880-10110504

PATIENT
  Age: 69 Year
  Sex: Male

DRUGS (5)
  1. REVLIMID [Suspect]
     Indication: MULTIPLE MYELOMA
     Route: 048
     Dates: start: 20071215
  2. REVLIMID [Suspect]
     Route: 048
     Dates: end: 20080315
  3. PREDNISONE [Suspect]
     Indication: MULTIPLE MYELOMA
     Route: 065
     Dates: start: 20071215, end: 20080315
  4. ERYTHROPOIETIN [Concomitant]
     Route: 065
  5. CLOPIDOGREL [Concomitant]
     Route: 065

REACTIONS (1)
  - CARDIOTOXICITY [None]
